FAERS Safety Report 25160026 (Version 1)
Quarter: 2025Q2

REPORT INFORMATION
  Report Type: Spontaneous
  Country: US (occurrence: US)
  Receive Date: 20250404
  Receipt Date: 20250404
  Transmission Date: 20250717
  Serious: Yes (Hospitalization, Other)
  Sender: STRIDES
  Company Number: None

PATIENT
  Age: 60 Year
  Sex: Female

DRUGS (7)
  1. PREDNISOLONE [Interacting]
     Active Substance: PREDNISOLONE
     Indication: Crohn^s disease
     Route: 065
     Dates: start: 202307, end: 202403
  2. VEDOLIZUMAB [Interacting]
     Active Substance: VEDOLIZUMAB
     Indication: Crohn^s disease
     Route: 065
     Dates: end: 202309
  3. UPADACITINIB [Interacting]
     Active Substance: UPADACITINIB
     Indication: Crohn^s disease
     Route: 065
     Dates: start: 202309, end: 2023
  4. UPADACITINIB [Interacting]
     Active Substance: UPADACITINIB
     Route: 065
     Dates: start: 2023
  5. UPADACITINIB [Interacting]
     Active Substance: UPADACITINIB
     Route: 065
     Dates: end: 2024
  6. VARICELLA-ZOSTER VIRUS STRAIN OKA/MERCK LIVE ANTIGEN [Interacting]
     Active Substance: VARICELLA-ZOSTER VIRUS STRAIN OKA/MERCK LIVE ANTIGEN
     Indication: Herpes zoster immunisation
     Route: 065
  7. VARICELLA-ZOSTER VIRUS STRAIN OKA/MERCK LIVE ANTIGEN [Interacting]
     Active Substance: VARICELLA-ZOSTER VIRUS STRAIN OKA/MERCK LIVE ANTIGEN
     Route: 065

REACTIONS (4)
  - Vaccine interaction [Unknown]
  - Drug interaction [Unknown]
  - Vaccination failure [Unknown]
  - Herpes zoster disseminated [Recovering/Resolving]

NARRATIVE: CASE EVENT DATE: 20240101
